FAERS Safety Report 8303007-7 (Version None)
Quarter: 2012Q2

REPORT INFORMATION
  Report Type: 
  Country: None (occurrence: None)
  Receive Date: 20120421
  Receipt Date: 20120403
  Transmission Date: 20120825
  Serious: Yes (Hospitalization)
  Sender: FDA-Public Use
  Company Number: PHHY2012JP029334

PATIENT
  Age: 45 Year
  Sex: Female
  Weight: 50 kg

DRUGS (2)
  1. NEORAL [Suspect]
     Dosage: 200 MG, UNK
     Route: 048
     Dates: start: 20120327, end: 20120329
  2. NEORAL [Suspect]
     Dosage: 400 MG, UNK
     Route: 048
     Dates: start: 20120321, end: 20120326

REACTIONS (5)
  - IMMUNOSUPPRESSANT DRUG LEVEL INCREASED [None]
  - C-REACTIVE PROTEIN INCREASED [None]
  - WHITE BLOOD CELL COUNT INCREASED [None]
  - INCORRECT DOSE ADMINISTERED [None]
  - ANAPHYLACTOID REACTION [None]
